FAERS Safety Report 19725371 (Version 2)
Quarter: 2021Q3

REPORT INFORMATION
  Report Type: Report from Study
  Country: US (occurrence: US)
  Receive Date: 20210820
  Receipt Date: 20210917
  Transmission Date: 20211014
  Serious: Yes (Other)
  Sender: FDA-Public Use
  Company Number: US-JNJFOC-20210729448

PATIENT
  Age: 6 Decade
  Sex: Female

DRUGS (2)
  1. UPTRAVI [Suspect]
     Active Substance: SELEXIPAG
     Route: 048
  2. UPTRAVI [Suspect]
     Active Substance: SELEXIPAG
     Indication: ESSENTIAL HYPERTENSION
     Route: 048
     Dates: start: 202012

REACTIONS (5)
  - Eye haemorrhage [Unknown]
  - Flushing [Not Recovered/Not Resolved]
  - Arthropathy [Unknown]
  - Joint swelling [Unknown]
  - Oesophageal food impaction [Unknown]
